FAERS Safety Report 8845268 (Version 1)
Quarter: 2012Q4

REPORT INFORMATION
  Report Type: 
  Country: FR (occurrence: FR)
  Receive Date: 20121017
  Receipt Date: 20121017
  Transmission Date: 20130627
  Serious: Yes (Hospitalization)
  Sender: FDA-Public Use
  Company Number: FR-PFIZER INC-2012254195

PATIENT
  Age: 12 Year
  Sex: Female

DRUGS (2)
  1. ADVIL [Suspect]
     Dosage: UNK
     Route: 048
     Dates: start: 201102, end: 201102
  2. ORELOX [Concomitant]
     Dosage: UNK
     Dates: start: 20110210

REACTIONS (2)
  - Nephropathy [Recovered/Resolved]
  - Renal failure acute [Recovered/Resolved]
